FAERS Safety Report 9752915 (Version 1)
Quarter: 2013Q4

REPORT INFORMATION
  Report Type: Spontaneous
  Country: US (occurrence: US)
  Receive Date: 20131213
  Receipt Date: 20131213
  Transmission Date: 20140711
  Serious: Yes (Other)
  Sender: FDA-Public Use
  Company Number: US-GLAXOSMITHKLINE-A1034222A

PATIENT
  Age: 63 Year
  Sex: Male

DRUGS (6)
  1. ARZERRA [Suspect]
     Indication: CHRONIC LYMPHOCYTIC LEUKAEMIA
     Dosage: 2000MG WEEKLY
     Route: 042
     Dates: start: 20130605
  2. METHYLPREDNISOLONE [Concomitant]
  3. POSACONAZOLE [Concomitant]
  4. BACTRIM DS [Concomitant]
  5. ACYCLOVIR [Concomitant]
  6. IVIG [Concomitant]

REACTIONS (1)
  - Neutropenia [Unknown]
